FAERS Safety Report 9294859 (Version 1)
Quarter: 2013Q2

REPORT INFORMATION
  Report Type: Spontaneous
  Country: US (occurrence: None)
  Receive Date: 20130514
  Receipt Date: 20130514
  Transmission Date: 20140414
  Serious: Yes (Hospitalization)
  Sender: FDA-Public Use
  Company Number: 2013-163

PATIENT
  Age: 48 Year
  Sex: Female

DRUGS (2)
  1. ZICONOTIDE [Suspect]
     Indication: MUSCULOSKELETAL CHEST PAIN
     Dosage: 0.05 MCG, ONCE/HOUR, INTRATHECAL
     Route: 037
  2. BUPIVACAINE HCL [Suspect]
     Indication: MUSCULOSKELETAL CHEST PAIN
     Dosage: 0.05 MG ONCE/HOUR, INTRATHECAL
     Route: 037

REACTIONS (9)
  - Tumour excision [None]
  - Abdominal pain lower [None]
  - Arthralgia [None]
  - Chondrosarcoma metastatic [None]
  - Paraesthesia [None]
  - Urinary retention [None]
  - Burning sensation [None]
  - Pelvic pain [None]
  - Post procedural complication [None]
